FAERS Safety Report 9068354 (Version 1)
Quarter: 2013Q1

REPORT INFORMATION
  Report Type: Spontaneous
  Country: US (occurrence: US)
  Receive Date: 20130206
  Receipt Date: 20130206
  Transmission Date: 20140127
  Serious: Yes (Hospitalization, Other)
  Sender: FDA-Public Use
  Company Number: US-BAXTER-2013BAX003680

PATIENT
  Age: 79 None
  Sex: Male

DRUGS (1)
  1. DIANEAL LOW CALCIUM [Suspect]
     Indication: PERITONEAL DIALYSIS
     Route: 033
     Dates: start: 20090513

REACTIONS (4)
  - Pulmonary oedema [Recovering/Resolving]
  - Cardiac disorder [Unknown]
  - Gangrene [Recovered/Resolved]
  - Asthenia [Recovered/Resolved]
